FAERS Safety Report 7902873-4 (Version None)
Quarter: 2011Q4

REPORT INFORMATION
  Report Type: 
  Country: None (occurrence: None)
  Receive Date: 20111107
  Receipt Date: 20111026
  Transmission Date: 20120403
  Serious: Yes (Hospitalization)
  Sender: FDA-Public Use
  Company Number: KR-004909

PATIENT
  Sex: Male
  Weight: 60 kg

DRUGS (8)
  1. DEGARELIX (DEGARELIX) (240 MG, 80 MG) [Suspect]
     Indication: PROSTATE CANCER
     Dosage: (240 MG 1X SUBCUTANEOUS), (80 MG 1X/MONTH SUBCUTANEOUS)
     Route: 058
     Dates: start: 20110214, end: 20110214
  2. DEGARELIX (DEGARELIX) (240 MG, 80 MG) [Suspect]
     Indication: PROSTATE CANCER
     Dosage: (240 MG 1X SUBCUTANEOUS), (80 MG 1X/MONTH SUBCUTANEOUS)
     Route: 058
     Dates: start: 20110317
  3. TAMSULOSINE HCL [Concomitant]
  4. TRIAZOLAM [Concomitant]
  5. ALMAGATE [Concomitant]
  6. OXYCODONE HCL EXTENDED-RELEASE [Concomitant]
  7. TIROPRAMIDE [Concomitant]
  8. SACCHAROMYCES MEDICINALIS [Concomitant]

REACTIONS (2)
  - METASTATIC PAIN [None]
  - SPINAL COMPRESSION FRACTURE [None]
